FAERS Safety Report 6631371-3 (Version None)
Quarter: 2010Q1

REPORT INFORMATION
  Report Type: 
  Country: None (occurrence: None)
  Receive Date: 20100312
  Receipt Date: 20100301
  Transmission Date: 20100710
  Serious: Yes (Hospitalization)
  Sender: FDA-Public Use
  Company Number: ES-JNJFOC-20100301108

PATIENT
  Age: 26 Year
  Sex: Male

DRUGS (2)
  1. REMICADE [Suspect]
     Indication: CROHN'S DISEASE
     Route: 042
  2. DRUGS FOR TREATMENT OF TUBERCULOSIS [Suspect]
     Indication: TUBERCULOSIS

REACTIONS (2)
  - DISSEMINATED TUBERCULOSIS [None]
  - HEPATOTOXICITY [None]
